FAERS Safety Report 6044776-9 (Version None)
Quarter: 2009Q1

REPORT INFORMATION
  Report Type: 
  Country: None (occurrence: None)
  Receive Date: 20090120
  Receipt Date: 20090113
  Transmission Date: 20090719
  Serious: No
  Sender: FDA-Public Use
  Company Number: US-B.I. PHARMACEUTICALS,INC./RIDGEFIELD-2008-BP-19067BP

PATIENT
  Sex: Female

DRUGS (11)
  1. CATAPRES-TTS-1 [Suspect]
     Indication: BLOOD PRESSURE
     Dosage: .2MG
     Route: 061
  2. ASPIRIN [Concomitant]
  3. SOTALOL HCL [Concomitant]
  4. CILOSTAZOL [Concomitant]
  5. HYDROCODONE BITARTRATE + ACETAMINOPHEN [Concomitant]
  6. LISINOPRIL [Concomitant]
  7. NIFEDIPINE [Concomitant]
  8. ALPRAZOLAM [Concomitant]
  9. LIPITOR [Concomitant]
  10. DOCUSATE SODIUM [Concomitant]
  11. FOLIC ACID [Concomitant]

REACTIONS (2)
  - DIZZINESS [None]
  - SKIN REACTION [None]
